FAERS Safety Report 5299223-1 (Version None)
Quarter: 2007Q2

REPORT INFORMATION
  Report Type: 
  Country: None (occurrence: None)
  Receive Date: 20070411
  Receipt Date: 20070411
  Transmission Date: 20071010
  Serious: Yes (Hospitalization)
  Sender: FDA-Public Use
  Company Number: None

PATIENT
  Age: 58 Year
  Sex: Male

DRUGS (12)
  1. WARFARIN SODIUM [Suspect]
     Indication: THROMBOSIS PROPHYLAXIS
     Dosage: 3MG  DAILY
  2. AMIODARONE HCL [Suspect]
     Dosage: 200MG  DAILY
  3. ASPIRIN [Suspect]
     Dosage: 81MG DAILY 4 MONTHS
  4. HYDROCORTISONE [Concomitant]
  5. FLUDROCORTISONE ACETATE [Concomitant]
  6. PREDNISONE TAB [Concomitant]
  7. SOTALOL HYDROCHLORIDE [Concomitant]
  8. ZANTAC [Concomitant]
  9. SIMVASTATIN [Concomitant]
  10. PROPYLTHIOURACIL [Concomitant]
  11. OMEPRAZOLE [Concomitant]
  12. MIDODRINE [Concomitant]

REACTIONS (4)
  - BLOOD PRESSURE DECREASED [None]
  - HAEMATOCHEZIA [None]
  - HAEMATURIA [None]
  - INTERNATIONAL NORMALISED RATIO INCREASED [None]
